FAERS Safety Report 6013448-9 (Version None)
Quarter: 2008Q4

REPORT INFORMATION
  Report Type: 
  Country: None (occurrence: None)
  Receive Date: 20081219
  Receipt Date: 20081204
  Transmission Date: 20090506
  Serious: Yes (Disabling)
  Sender: FDA-Public Use
  Company Number: AU-PFIZER INC-2008091788

PATIENT

DRUGS (1)
  1. CHAMPIX [Suspect]
     Dosage: 1 MG, 2X/DAY
     Dates: start: 20080616, end: 20080717

REACTIONS (12)
  - BLOOD TRIGLYCERIDES DECREASED [None]
  - BODY TEMPERATURE INCREASED [None]
  - DIZZINESS [None]
  - HYPERHIDROSIS [None]
  - IMPAIRED WORK ABILITY [None]
  - MALAISE [None]
  - NAUSEA [None]
  - PALLOR [None]
  - PRESYNCOPE [None]
  - SOMNOLENCE [None]
  - TINNITUS [None]
  - VISION BLURRED [None]
